FAERS Safety Report 25622270 (Version 1)
Quarter: 2025Q3

REPORT INFORMATION
  Report Type: Spontaneous
  Country: US (occurrence: US)
  Receive Date: 20250730
  Receipt Date: 20250730
  Transmission Date: 20251020
  Serious: Yes (Life-Threatening, Hospitalization)
  Sender: MYLAN
  Company Number: US-MYLANLABS-2025M1063140

PATIENT
  Age: 66 Year
  Sex: Female

DRUGS (16)
  1. PREDNISONE [Suspect]
     Active Substance: PREDNISONE
     Indication: Crohn^s disease
     Dosage: 10 MILLIGRAM, QD
  2. PREDNISONE [Suspect]
     Active Substance: PREDNISONE
     Dosage: 10 MILLIGRAM, QD
     Route: 065
  3. PREDNISONE [Suspect]
     Active Substance: PREDNISONE
     Dosage: 10 MILLIGRAM, QD
     Route: 065
  4. PREDNISONE [Suspect]
     Active Substance: PREDNISONE
     Dosage: 10 MILLIGRAM, QD
  5. INFLIXIMAB [Suspect]
     Active Substance: INFLIXIMAB
     Indication: Crohn^s disease
  6. INFLIXIMAB [Suspect]
     Active Substance: INFLIXIMAB
     Route: 065
  7. INFLIXIMAB [Suspect]
     Active Substance: INFLIXIMAB
     Route: 065
  8. INFLIXIMAB [Suspect]
     Active Substance: INFLIXIMAB
  9. FIDAXOMICIN [Concomitant]
     Active Substance: FIDAXOMICIN
     Indication: Clostridium difficile colitis
  10. FIDAXOMICIN [Concomitant]
     Active Substance: FIDAXOMICIN
     Route: 065
  11. FIDAXOMICIN [Concomitant]
     Active Substance: FIDAXOMICIN
     Route: 065
  12. FIDAXOMICIN [Concomitant]
     Active Substance: FIDAXOMICIN
  13. METRONIDAZOLE [Concomitant]
     Active Substance: METRONIDAZOLE
     Indication: Clostridium difficile colitis
  14. METRONIDAZOLE [Concomitant]
     Active Substance: METRONIDAZOLE
     Route: 065
  15. METRONIDAZOLE [Concomitant]
     Active Substance: METRONIDAZOLE
     Route: 065
  16. METRONIDAZOLE [Concomitant]
     Active Substance: METRONIDAZOLE

REACTIONS (4)
  - Pneumocystis jirovecii pneumonia [Recovering/Resolving]
  - Respiratory failure [Unknown]
  - Distributive shock [Unknown]
  - Hypovolaemic shock [Unknown]
